FAERS Safety Report 20240366 (Version 1)
Quarter: 2021Q4

REPORT INFORMATION
  Report Type: Spontaneous
  Country: AR (occurrence: AR)
  Receive Date: 20211228
  Receipt Date: 20211228
  Transmission Date: 20220303
  Serious: Yes (Other)
  Sender: FDA-Public Use
  Company Number: AR-PFIZER INC-202101804536

PATIENT
  Age: 80 Year
  Sex: Female

DRUGS (2)
  1. IBRANCE [Suspect]
     Active Substance: PALBOCICLIB
     Indication: Breast cancer metastatic
     Dosage: 100 MG, CYCLIC (DAILY, SCHEME 3X1)
     Dates: start: 20200323
  2. LETROZOLE [Concomitant]
     Active Substance: LETROZOLE
     Indication: Breast cancer metastatic
     Dosage: UNK

REACTIONS (22)
  - Skin cancer [Not Recovered/Not Resolved]
  - Skin papilloma [Not Recovered/Not Resolved]
  - COVID-19 [Not Recovered/Not Resolved]
  - Breast mass [Unknown]
  - Lymphadenopathy mediastinal [Unknown]
  - Lung infiltration [Unknown]
  - Cardiomegaly [Unknown]
  - Intervertebral disc disorder [Unknown]
  - Malaise [Not Recovered/Not Resolved]
  - Diarrhoea [Not Recovered/Not Resolved]
  - Colitis [Not Recovered/Not Resolved]
  - Vomiting [Not Recovered/Not Resolved]
  - Neoplasm progression [Not Recovered/Not Resolved]
  - Nausea [Not Recovered/Not Resolved]
  - Nail disorder [Not Recovered/Not Resolved]
  - Alopecia [Not Recovered/Not Resolved]
  - Poor peripheral circulation [Not Recovered/Not Resolved]
  - Erythema [Not Recovered/Not Resolved]
  - Infection [Not Recovered/Not Resolved]
  - Ulcer [Not Recovered/Not Resolved]
  - Limb injury [Not Recovered/Not Resolved]
  - Impaired healing [Not Recovered/Not Resolved]

NARRATIVE: CASE EVENT DATE: 20200101
